FAERS Safety Report 17840455 (Version 1)
Quarter: 2020Q2

REPORT INFORMATION
  Report Type: Spontaneous
  Country: US (occurrence: US)
  Receive Date: 20200529
  Receipt Date: 20200529
  Transmission Date: 20200714
  Serious: Yes (Other)
  Sender: FDA-Public Use
  Company Number: US-MYLANLABS-2020M1052377

PATIENT
  Sex: Male

DRUGS (14)
  1. ZONISAMIDE. [Suspect]
     Active Substance: ZONISAMIDE
     Indication: RASMUSSEN ENCEPHALITIS
     Route: 065
  2. LACOSAMIDE. [Concomitant]
     Active Substance: LACOSAMIDE
     Indication: RASMUSSEN ENCEPHALITIS
     Route: 065
  3. VALPROIC ACID. [Suspect]
     Active Substance: VALPROIC ACID
     Indication: RASMUSSEN ENCEPHALITIS
     Route: 065
  4. METHYLPREDNISOLONE. [Suspect]
     Active Substance: METHYLPREDNISOLONE
     Indication: RASMUSSEN ENCEPHALITIS
     Dosage: 1 GRAM, QD
     Route: 042
  5. LEVETIRACETAM. [Suspect]
     Active Substance: LEVETIRACETAM
     Indication: RASMUSSEN ENCEPHALITIS
     Route: 065
  6. OXCARBAZEPINE. [Suspect]
     Active Substance: OXCARBAZEPINE
     Indication: RASMUSSEN ENCEPHALITIS
     Route: 065
  7. FOSPHENYTOIN [Concomitant]
     Active Substance: FOSPHENYTOIN
     Indication: RASMUSSEN ENCEPHALITIS
     Route: 065
  8. DIAZEPAM. [Suspect]
     Active Substance: DIAZEPAM
     Indication: RASMUSSEN ENCEPHALITIS
     Route: 065
  9. RITUXIMAB. [Suspect]
     Active Substance: RITUXIMAB
     Indication: RASMUSSEN ENCEPHALITIS
     Dosage: 375 MILLIGRAM/SQ. METER, QW
     Route: 065
  10. TOPIRAMATE. [Suspect]
     Active Substance: TOPIRAMATE
     Indication: RASMUSSEN ENCEPHALITIS
     Route: 065
  11. PREDNISONE. [Suspect]
     Active Substance: PREDNISONE
     Indication: RASMUSSEN ENCEPHALITIS
     Dosage: 40 MILLIGRAM, QD, TAPERING
     Route: 065
  12. IMMUNOGLOBULIN                     /00025201/ [Concomitant]
     Active Substance: HUMAN IMMUNOGLOBULIN G
     Indication: RASMUSSEN ENCEPHALITIS
     Dosage: 2 G/KG
     Route: 042
  13. PHENOBARBITAL. [Concomitant]
     Active Substance: PHENOBARBITAL
     Indication: RASMUSSEN ENCEPHALITIS
     Route: 065
  14. METHYLPREDNISOLONE. [Suspect]
     Active Substance: METHYLPREDNISOLONE
     Indication: RASMUSSEN ENCEPHALITIS
     Dosage: 30 MG/KG/DAY
     Route: 065

REACTIONS (1)
  - Drug ineffective [Unknown]
